FAERS Safety Report 5221456-0 (Version None)
Quarter: 2007Q1

REPORT INFORMATION
  Report Type: 
  Country: None (occurrence: None)
  Receive Date: 20070126
  Receipt Date: 20070117
  Transmission Date: 20070707
  Serious: Yes (Death, Life-Threatening, Hospitalization)
  Sender: FDA-Public Use
  Company Number: JP-MERCK-0612USA01959

PATIENT
  Age: 78 Year
  Sex: Male
  Weight: 39 kg

DRUGS (16)
  1. PRIMAXIN [Suspect]
     Indication: INFECTION
     Route: 042
     Dates: start: 20061020, end: 20061027
  2. PRIMAXIN [Suspect]
     Route: 042
     Dates: start: 20061019, end: 20061019
  3. DIFLUCAN [Concomitant]
     Route: 042
     Dates: start: 20060905, end: 20061017
  4. BACTRIM [Concomitant]
     Route: 048
     Dates: start: 20061020, end: 20061023
  5. HABEKACIN [Concomitant]
     Route: 051
     Dates: start: 20061023, end: 20061025
  6. PROSTARMON F [Concomitant]
     Route: 042
     Dates: start: 20061024
  7. ISEPACIN [Concomitant]
     Route: 051
     Dates: start: 20061027
  8. MODACIN [Concomitant]
     Route: 042
     Dates: start: 20061028
  9. GRAMALIL [Concomitant]
     Route: 048
     Dates: start: 20060629, end: 20061022
  10. MUCODYNE [Concomitant]
     Route: 048
     Dates: start: 20060629, end: 20061027
  11. OMEPRAL [Concomitant]
     Route: 048
     Dates: start: 20060629, end: 20061027
  12. TOLEDOMIN [Concomitant]
     Route: 048
     Dates: start: 20060629, end: 20061027
  13. ROCALTROL [Concomitant]
     Route: 048
     Dates: start: 20060629, end: 20061027
  14. VEGETAMIN A [Concomitant]
     Route: 048
     Dates: start: 20060630, end: 20061022
  15. [THERAPY UNSPECIFIED] [Concomitant]
     Route: 065
     Dates: start: 20060727, end: 20061027
  16. [THERAPY UNSPECIFIED] [Concomitant]
     Route: 048
     Dates: start: 20060902, end: 20061027

REACTIONS (1)
  - LIVER DISORDER [None]
